FAERS Safety Report 5828719-6 (Version None)
Quarter: 2008Q3

REPORT INFORMATION
  Report Type: 
  Country: None (occurrence: None)
  Receive Date: 20080729
  Receipt Date: 20080718
  Transmission Date: 20090109
  Serious: Yes (Hospitalization)
  Sender: FDA-Public Use
  Company Number: CAR-2008-032

PATIENT
  Age: 49 Year
  Sex: Female

DRUGS (2)
  1. SUCRALFATE [Suspect]
     Dosage: ORAL
     Route: 048
     Dates: start: 20080616, end: 20080617
  2. MUCOMYST [Suspect]
     Dosage: ORAL
     Route: 048
     Dates: start: 20080616, end: 20080617

REACTIONS (3)
  - PRURITUS [None]
  - RASH ERYTHEMATOUS [None]
  - SKIN EXFOLIATION [None]
